FAERS Safety Report 26094556 (Version 1)
Quarter: 2025Q4

REPORT INFORMATION
  Report Type: Report from Study
  Country: US (occurrence: US)
  Receive Date: 20251126
  Receipt Date: 20251126
  Transmission Date: 20260118
  Serious: Yes (Hospitalization, Disabling, Other)
  Sender: SPRINGWORKS THERAPEUTIC
  Company Number: SW-001266

PATIENT
  Age: 36 Year
  Sex: Male
  Weight: 95.5 kg

DRUGS (7)
  1. NIROGACESTAT [Suspect]
     Active Substance: NIROGACESTAT
     Indication: Desmoid tumour
     Dosage: 150 MILLIGRAM, BID
     Dates: start: 20240122
  2. NIROGACESTAT [Suspect]
     Active Substance: NIROGACESTAT
     Dosage: 150 MILLIGRAM, BID
     Dates: start: 20240117, end: 20240422
  3. ADDERALL [Concomitant]
     Active Substance: AMPHETAMINE ASPARTATE\AMPHETAMINE SULFATE\DEXTROAMPHETAMINE SACCHARATE\DEXTROAMPHETAMINE SULFATE
     Indication: Product used for unknown indication
     Dosage: 15 MILLIGRAM
  4. IBUPROFEN [Concomitant]
     Active Substance: IBUPROFEN
     Indication: Product used for unknown indication
  5. GABAPENTIN [Concomitant]
     Active Substance: GABAPENTIN
     Indication: Product used for unknown indication
     Dosage: 300 MILLIGRAM
  6. TRAMADOL [Concomitant]
     Active Substance: TRAMADOL
     Indication: Product used for unknown indication
     Dosage: 50 MILLIGRAM
  7. IMODIUM [Concomitant]
     Active Substance: LOPERAMIDE HYDROCHLORIDE
     Indication: Product used for unknown indication
     Dosage: UNK

REACTIONS (21)
  - Central serous chorioretinopathy [Recovered/Resolved]
  - Visual impairment [Recovered/Resolved]
  - Nephrolithiasis [Unknown]
  - Appendicitis perforated [Unknown]
  - Subretinal fluid [Recovering/Resolving]
  - Abdominal discomfort [Recovering/Resolving]
  - Dehydration [Recovered/Resolved]
  - Visual impairment [Recovering/Resolving]
  - Visual field defect [Unknown]
  - Impaired driving ability [Unknown]
  - Intraocular pressure increased [Unknown]
  - Ocular discomfort [Unknown]
  - Asthenia [Recovering/Resolving]
  - Vision blurred [Recovering/Resolving]
  - Surgery [Unknown]
  - Anxiety [Unknown]
  - Depression [Unknown]
  - Headache [Recovering/Resolving]
  - Diarrhoea [Recovering/Resolving]
  - Product dose omission issue [Unknown]
  - Product dose omission in error [Unknown]

NARRATIVE: CASE EVENT DATE: 20240417
